FAERS Safety Report 7271061-X (Version None)
Quarter: 2011Q1

REPORT INFORMATION
  Report Type: 
  Country: None (occurrence: None)
  Receive Date: 20110202
  Receipt Date: 20110128
  Transmission Date: 20110831
  Serious: Yes (Other)
  Sender: FDA-Public Use
  Company Number: US-PFIZER INC-2011021665

PATIENT

DRUGS (1)
  1. XALATAN [Suspect]

REACTIONS (1)
  - CATARACT [None]
